FAERS Safety Report 8310621-1 (Version None)
Quarter: 2012Q2

REPORT INFORMATION
  Report Type: 
  Country: None (occurrence: None)
  Receive Date: 20120425
  Receipt Date: 20120425
  Transmission Date: 20120825
  Serious: Yes (Hospitalization)
  Sender: FDA-Public Use
  Company Number: None

PATIENT
  Age: 17 Year
  Sex: Female
  Weight: 45.359 kg

DRUGS (1)
  1. DIPHENHYDRAMINE HCL [Suspect]
     Indication: HYPERSENSITIVITY

REACTIONS (3)
  - LOSS OF CONSCIOUSNESS [None]
  - INAPPROPRIATE SCHEDULE OF DRUG ADMINISTRATION [None]
  - ACCIDENTAL OVERDOSE [None]
